FAERS Safety Report 7170678-0 (Version None)
Quarter: 2010Q4

REPORT INFORMATION
  Report Type: 
  Country: None (occurrence: None)
  Receive Date: 20101217
  Receipt Date: 20101206
  Transmission Date: 20110411
  Serious: Yes (Other)
  Sender: FDA-Public Use
  Company Number: DE-ELI_LILLY_AND_COMPANY-DE201012001615

PATIENT
  Sex: Female
  Weight: 80 kg

DRUGS (4)
  1. YENTREVE [Suspect]
     Indication: STRESS URINARY INCONTINENCE
     Dosage: 20 MG, UNK
     Route: 048
     Dates: start: 20100401
  2. PROVAS                             /00641902/ [Concomitant]
     Dosage: 160 MG, UNK
  3. FALICARD [Concomitant]
     Route: 048
  4. NOVOTHYRAL [Concomitant]
     Dosage: 100 D/F, UNK
     Route: 048

REACTIONS (5)
  - CIRCULATORY COLLAPSE [None]
  - DRUG WITHDRAWAL SYNDROME [None]
  - HYPERACUSIS [None]
  - PRURITUS [None]
  - PRURITUS GENERALISED [None]
